FAERS Safety Report 16357582 (Version 1)
Quarter: 2019Q2

REPORT INFORMATION
  Report Type: Report from Study
  Country: None (occurrence: TN)
  Receive Date: 20190527
  Receipt Date: 20190527
  Transmission Date: 20190711
  Serious: Yes (Hospitalization)
  Sender: FDA-Public Use
  Company Number: TN-ABBVIE-19K-160-2797092-00

PATIENT
  Age: 42 Year
  Sex: Female

DRUGS (2)
  1. PREDNISONE. [Concomitant]
     Active Substance: PREDNISONE
     Indication: CROHN^S DISEASE
     Route: 065
     Dates: start: 2009
  2. HUMIRA [Suspect]
     Active Substance: ADALIMUMAB
     Indication: CROHN^S DISEASE
     Route: 058
     Dates: start: 20160601, end: 201904

REACTIONS (3)
  - Abdominal distension [Recovered/Resolved]
  - Gastrointestinal inflammation [Recovered/Resolved]
  - Post procedural diarrhoea [Not Recovered/Not Resolved]

NARRATIVE: CASE EVENT DATE: 201903
